FAERS Safety Report 4914755-0 (Version None)
Quarter: 2006Q1

REPORT INFORMATION
  Report Type: 
  Country: None (occurrence: None)
  Receive Date: 20060216
  Receipt Date: 20060123
  Transmission Date: 20060701
  Serious: Yes (Hospitalization)
  Sender: FDA-Public Use
  Company Number: US-NOVOPROD-250869

PATIENT
  Sex: Male

DRUGS (2)
  1. NORDITROPIN CARTRIDGES [Suspect]
     Indication: GROWTH HORMONE DEFICIENCY
     Dosage: UNKNOWN
     Dates: start: 20050901
  2. STEROIDS NOS [Concomitant]
     Indication: DRUG USE FOR UNKNOWN INDICATION
     Dosage: UNKNOWN

REACTIONS (4)
  - DEVICE MALFUNCTION [None]
  - HYPOGLYCAEMIC SEIZURE [None]
  - INCORRECT DOSE ADMINISTERED [None]
  - UNDERDOSE [None]
